FAERS Safety Report 8445686-X (Version None)
Quarter: 2012Q2

REPORT INFORMATION
  Report Type: 
  Country: None (occurrence: None)
  Receive Date: 20120618
  Receipt Date: 20090811
  Transmission Date: 20120825
  Serious: Yes (Hospitalization, Disabling)
  Sender: FDA-Public Use
  Company Number: US-GLAXOSMITHKLINE-A0802715A

PATIENT
  Age: 66 Year
  Sex: Male

DRUGS (6)
  1. AVANDIA [Suspect]
     Indication: DIABETES MELLITUS
     Dosage: 4MG TWICE PER DAY
     Route: 048
     Dates: start: 19990101, end: 20050101
  2. TRENTAL [Concomitant]
  3. LANOXIN [Concomitant]
  4. TOPROL-XL [Concomitant]
  5. GLIPIZIDE [Concomitant]
  6. PENTOXIFYLLINE [Concomitant]

REACTIONS (7)
  - CORONARY ARTERY DISEASE [None]
  - CARDIAC FAILURE CONGESTIVE [None]
  - ATRIAL FIBRILLATION [None]
  - INJURY [None]
  - UNEVALUABLE EVENT [None]
  - BUNDLE BRANCH BLOCK LEFT [None]
  - PAIN [None]
